FAERS Safety Report 10416420 (Version 2)
Quarter: 2014Q4

REPORT INFORMATION
  Report Type: Spontaneous
  Country: US (occurrence: None)
  Receive Date: 20140826
  Receipt Date: 20141027
  Transmission Date: 20150528
  Serious: Yes (Hospitalization, Other)
  Sender: FDA-Public Use
  Company Number: 2014-US-010338

PATIENT
  Age: 52 Year
  Sex: Female
  Weight: 48.5 kg

DRUGS (4)
  1. XYREM [Suspect]
     Active Substance: SODIUM OXYBATE
     Indication: CATAPLEXY
     Route: 048
     Dates: start: 200602, end: 2006
  2. XYREM [Suspect]
     Active Substance: SODIUM OXYBATE
     Indication: NARCOLEPSY
     Route: 048
     Dates: start: 200602, end: 2006
  3. XYREM [Suspect]
     Active Substance: SODIUM OXYBATE
     Indication: SOMNOLENCE
     Route: 048
     Dates: start: 200602, end: 2006
  4. PRILOSEC (OMEPRAZOLE) [Concomitant]
     Active Substance: OMEPRAZOLE MAGNESIUM

REACTIONS (10)
  - Short-bowel syndrome [None]
  - Condition aggravated [None]
  - Erosive oesophagitis [None]
  - Vocal cord inflammation [None]
  - Nosocomial infection [None]
  - Intestinal obstruction [None]
  - Weight decreased [None]
  - Gastrooesophageal reflux disease [None]
  - Abdominal adhesions [None]
  - Intestinal strangulation [None]

NARRATIVE: CASE EVENT DATE: 2010
